FAERS Safety Report 5526886-5 (Version None)
Quarter: 2007Q4

REPORT INFORMATION
  Report Type: 
  Country: None (occurrence: None)
  Receive Date: 20071127
  Receipt Date: 20071115
  Transmission Date: 20080405
  Serious: Yes (Other)
  Sender: FDA-Public Use
  Company Number: DE-PFIZER INC-2007094835

PATIENT
  Sex: Female
  Weight: 71 kg

DRUGS (15)
  1. CHAMPIX [Suspect]
     Indication: SMOKING CESSATION THERAPY
     Dosage: TEXT:1 TABLET BID  TDD:2 TABLETS
     Route: 048
     Dates: start: 20070101, end: 20071022
  2. ACETYLSALICYLIC ACID SRT [Concomitant]
     Route: 048
  3. DIOVAN [Concomitant]
     Route: 048
  4. ALL OTHER THERAPEUTIC PRODUCTS [Concomitant]
     Route: 048
  5. CLONIDINE HCL [Concomitant]
     Route: 048
  6. NEBILET [Concomitant]
     Route: 048
  7. MAREEN [Concomitant]
     Route: 048
  8. CIPRALEX [Concomitant]
     Route: 048
  9. SILYMARIN [Concomitant]
     Route: 048
  10. SORTIS [Concomitant]
     Route: 048
  11. L-THYROXIN [Concomitant]
     Route: 048
  12. REMIFEMIN [Concomitant]
     Route: 048
  13. ALL OTHER THERAPEUTIC PRODUCTS [Concomitant]
     Route: 048
  14. ANTIHYPERTENSIVES [Concomitant]
  15. ALLOPURINOL [Concomitant]

REACTIONS (5)
  - DIARRHOEA [None]
  - FAILURE OF IMPLANT [None]
  - MOUTH HAEMORRHAGE [None]
  - PRURITUS [None]
  - VULVOVAGINAL PRURITUS [None]
